FAERS Safety Report 7933375 (Version 5)
Quarter: 2014Q4

REPORT INFORMATION
  Report Type: Spontaneous
  Country: US (occurrence: US)
  Receive Date: 20110506
  Receipt Date: 20141226
  Transmission Date: 20150529
  Serious: Yes (Life-Threatening, Hospitalization, Other)
  Sender: FDA-Public Use
  Company Number: US-BAYER-2011-038410

PATIENT
  Age: 41 Year
  Sex: Female
  Weight: 127 kg

DRUGS (10)
  1. HYDROCODONE [Concomitant]
     Active Substance: HYDROCODONE
  2. MISOPROSTOL. [Concomitant]
     Active Substance: MISOPROSTOL
  3. MEDROXYPROGESTERONE [Concomitant]
     Active Substance: MEDROXYPROGESTERONE
     Dosage: 10 MG, DAILY
     Route: 048
     Dates: start: 20070227
  4. DYAZIDE [Concomitant]
     Active Substance: HYDROCHLOROTHIAZIDE\TRIAMTERENE
     Dosage: UNK UNK, PRN
  5. VICODIN [Concomitant]
     Active Substance: ACETAMINOPHEN\HYDROCODONE BITARTRATE
     Dosage: UNK
     Dates: start: 20070306
  6. CYTOTEC [Concomitant]
     Active Substance: MISOPROSTOL
     Dosage: 200 U, UNK
     Dates: start: 20070306
  7. VIBRAMYCIN [Concomitant]
     Active Substance: DOXYCYCLINE
     Dosage: 100 MG, UNK
     Dates: start: 20070306
  8. LOESTRIN NOS [Concomitant]
     Active Substance: ETHINYL ESTRADIOL\NORETHINDRONE ACETATE
     Dosage: UNK
     Dates: start: 200701, end: 20070313
  9. YAZ [Suspect]
     Active Substance: DROSPIRENONE\ETHINYL ESTRADIOL
     Dosage: UNK
     Dates: start: 2007, end: 200705
  10. TRIAMTERENE. [Concomitant]
     Active Substance: TRIAMTERENE

REACTIONS (5)
  - Cerebrovascular disorder [None]
  - Pain [None]
  - Cerebrovascular accident [None]
  - Ischaemic cerebral infarction [None]
  - Injury [None]

NARRATIVE: CASE EVENT DATE: 20070528
